FAERS Safety Report 17505708 (Version 2)
Quarter: 2020Q2

REPORT INFORMATION
  Report Type: Other
  Country: US (occurrence: US)
  Receive Date: 20200305
  Receipt Date: 20200424
  Transmission Date: 20200713
  Serious: No
  Sender: FDA-Public Use
  Company Number: US-AMAG PHARMACEUTICALS, INC.-AMAG202000699

PATIENT
  Age: 28 Year
  Sex: Female

DRUGS (1)
  1. MAKENA [Suspect]
     Active Substance: HYDROXYPROGESTERONE CAPROATE
     Indication: PREMATURE DELIVERY
     Dosage: 250MG/ML, WEEKLY
     Route: 058
     Dates: start: 20200121

REACTIONS (7)
  - Injection site pain [Recovered/Resolved with Sequelae]
  - Contusion [Not Recovered/Not Resolved]
  - Rash papular [Not Recovered/Not Resolved]
  - Pruritus [Not Recovered/Not Resolved]
  - Injection site bruising [Recovered/Resolved with Sequelae]
  - Erythema [Not Recovered/Not Resolved]
  - Injection site haemorrhage [Recovered/Resolved with Sequelae]

NARRATIVE: CASE EVENT DATE: 20200218
